FAERS Safety Report 15115036 (Version 1)
Quarter: 2020Q3

REPORT INFORMATION
  Report Type: Spontaneous
  Country: IT (occurrence: IT)
  Receive Date: 20180706
  Receipt Date: 20180706
  Transmission Date: 20201105
  Serious: Yes (Hospitalization)
  Sender: FDA-Public Use
  Company Number: IND-IT-009507513-1803ITA010489

PATIENT
  Age: 54 Year
  Sex: Male

DRUGS (1)
  1. ETORICOXIB. [Suspect]
     Active Substance: ETORICOXIB
     Indication: PAIN
     Dosage: 1 TABLET
     Route: 048
     Dates: start: 20180221, end: 20180221

REACTIONS (4)
  - Skin burning sensation [Recovering/Resolving]
  - Blister [Recovering/Resolving]
  - Dermatitis bullous [Recovering/Resolving]
  - Pruritus [Recovering/Resolving]

NARRATIVE: CASE EVENT DATE: 20180221
